FAERS Safety Report 9434064 (Version 2)
Quarter: 2013Q3

REPORT INFORMATION
  Report Type: Spontaneous
  Country: US (occurrence: US)
  Receive Date: 20130801
  Receipt Date: 20130920
  Transmission Date: 20140515
  Serious: No
  Sender: FDA-Public Use
  Company Number: US-BIOGENIDEC-2013BI070076

PATIENT
  Age: 28 Year
  Sex: Female

DRUGS (1)
  1. TYSABRI [Suspect]
     Indication: MULTIPLE SCLEROSIS
     Route: 042
     Dates: start: 20130627

REACTIONS (11)
  - Peripheral coldness [Recovered/Resolved with Sequelae]
  - Urinary bladder rupture [Not Recovered/Not Resolved]
  - Symphysiolysis [Not Recovered/Not Resolved]
  - Musculoskeletal disorder [Unknown]
  - Hernia [Recovered/Resolved]
  - Bladder dysfunction [Unknown]
  - Dysstasia [Not Recovered/Not Resolved]
  - Multiple sclerosis relapse [Recovered/Resolved]
  - Infusion related reaction [Recovered/Resolved with Sequelae]
  - Herpes zoster [Unknown]
  - Infection [Recovered/Resolved]
